FAERS Safety Report 7360924-2 (Version None)
Quarter: 2011Q1

REPORT INFORMATION
  Report Type: 
  Country: None (occurrence: None)
  Receive Date: 20110318
  Receipt Date: 20110307
  Transmission Date: 20110831
  Serious: Yes (Other)
  Sender: FDA-Public Use
  Company Number: PHHY2011CA15865

PATIENT
  Sex: Female

DRUGS (1)
  1. ACLASTA [Suspect]
     Indication: OSTEOPOROSIS
     Dosage: UNK
     Dates: start: 20110218

REACTIONS (8)
  - AMNESIA [None]
  - CHILLS [None]
  - MYALGIA [None]
  - PYREXIA [None]
  - HEADACHE [None]
  - GAIT DISTURBANCE [None]
  - ARTHRALGIA [None]
  - NAUSEA [None]
